FAERS Safety Report 17431895 (Version 1)
Quarter: 2020Q1

REPORT INFORMATION
  Report Type: Spontaneous
  Country: RU (occurrence: RU)
  Receive Date: 20200218
  Receipt Date: 20200218
  Transmission Date: 20200409
  Serious: No
  Sender: FDA-Public Use
  Company Number: RU-B.BRAUN MEDICAL INC.-2080627

PATIENT
  Age: 66 Year
  Sex: Female
  Weight: 80 kg

DRUGS (6)
  1. CEFAZOLIN SODIUM. [Concomitant]
     Active Substance: CEFAZOLIN SODIUM
     Route: 040
     Dates: start: 20200116, end: 20200116
  2. DROTAVERINE [Concomitant]
     Active Substance: DROTAVERINE
     Route: 030
     Dates: start: 20200116, end: 20200119
  3. NEOSTIGMINE METHYLSULFATE. [Concomitant]
     Active Substance: NEOSTIGMINE METHYLSULFATE
     Route: 058
     Dates: start: 20190116, end: 20200119
  4. KETOROLAC [Concomitant]
     Active Substance: KETOROLAC TROMETHAMINE
     Route: 030
     Dates: start: 20200116, end: 20200117
  5. HEPARIN SODIUM IN DEXTROSE [Suspect]
     Active Substance: HEPARIN SODIUM
     Indication: THROMBOSIS PROPHYLAXIS
     Route: 058
     Dates: start: 20200116, end: 20200119
  6. POTASSIUM CHLORIDE + CALCIUM CHLORIDE + MAGNESIUM CHLORIDE + SODIUM AC [Concomitant]
     Dates: start: 20200117, end: 20200117

REACTIONS (3)
  - Pruritus [Recovered/Resolved]
  - Rash [Recovered/Resolved]
  - Skin burning sensation [Recovered/Resolved]
